FAERS Safety Report 25844259 (Version 1)
Quarter: 2025Q3

REPORT INFORMATION
  Report Type: Spontaneous
  Country: CN (occurrence: CN)
  Receive Date: 20250925
  Receipt Date: 20250925
  Transmission Date: 20251021
  Serious: Yes (Hospitalization)
  Sender: Haleon PLC
  Company Number: CN-HALEON-2263936

PATIENT
  Age: 24 Year
  Sex: Female
  Weight: 82 kg

DRUGS (2)
  1. IBUPROFEN [Suspect]
     Active Substance: IBUPROFEN
     Indication: Oropharyngeal pain
     Dosage: SUSTAINED RELEASE CAPSULES
     Route: 048
     Dates: start: 20250914, end: 20250914
  2. ACETAMINOPHEN\BOS TAURUS GALLSTONE\CAFFEINE\CHLORPHENIRAMINE MALEATE [Suspect]
     Active Substance: ACETAMINOPHEN\BOS TAURUS GALLSTONE\CAFFEINE\CHLORPHENIRAMINE MALEATE
     Indication: Oropharyngeal pain
     Route: 048
     Dates: start: 20250914, end: 20250914

REACTIONS (10)
  - Drug eruption [Recovering/Resolving]
  - Rash [Recovering/Resolving]
  - Chills [Recovering/Resolving]
  - Swelling [Recovering/Resolving]
  - Papule [Recovering/Resolving]
  - Pyrexia [Recovering/Resolving]
  - Erythema [Recovering/Resolving]
  - Temperature intolerance [Recovering/Resolving]
  - Flushing [Recovering/Resolving]
  - Pruritus [Recovering/Resolving]

NARRATIVE: CASE EVENT DATE: 20250914
